FAERS Safety Report 7622924-4 (Version None)
Quarter: 2011Q3

REPORT INFORMATION
  Report Type: 
  Country: None (occurrence: None)
  Receive Date: 20110719
  Receipt Date: 20110719
  Transmission Date: 20111222
  Serious: No
  Sender: FDA-Public Use
  Company Number: None

PATIENT
  Sex: Male
  Weight: 65.7716 kg

DRUGS (1)
  1. GEODON [Suspect]
     Indication: BIPOLAR DISORDER
     Dosage: 1 DAILY

REACTIONS (4)
  - OPTIC NERVE DISORDER [None]
  - VISUAL IMPAIRMENT [None]
  - BLINDNESS TRANSIENT [None]
  - GLAUCOMA [None]
